FAERS Safety Report 15592853 (Version 1)
Quarter: 2018Q4

REPORT INFORMATION
  Report Type: Spontaneous
  Country: PL (occurrence: PL)
  Receive Date: 20181106
  Receipt Date: 20181106
  Transmission Date: 20190205
  Serious: Yes (Other)
  Sender: FDA-Public Use
  Company Number: PHHY2018PL143758

PATIENT
  Sex: Female

DRUGS (6)
  1. SULFADOXINE [Suspect]
     Active Substance: SULFADOXINE
     Indication: EYE INFECTION TOXOPLASMAL
     Dosage: 500 MG, BID
     Route: 065
  2. SPIRAMYCIN [Suspect]
     Active Substance: SPIRAMYCIN
     Indication: EYE INFECTION TOXOPLASMAL
     Dosage: 3 MIU, TID
     Route: 065
  3. SULFADOXINE [Suspect]
     Active Substance: SULFADOXINE
     Dosage: 500 MG, QD
     Route: 065
  4. PREDNISONE. [Suspect]
     Active Substance: PREDNISONE
     Indication: EYE INFECTION TOXOPLASMAL
     Dosage: 40 MG, QD
     Route: 048
  5. AZITHROMYCIN ANHYDROUS. [Suspect]
     Active Substance: AZITHROMYCIN ANHYDROUS
     Indication: EYE INFECTION TOXOPLASMAL
     Dosage: 500 MG, QD
     Route: 065
  6. PYRIMETHAMINE [Suspect]
     Active Substance: PYRIMETHAMINE
     Indication: EYE INFECTION TOXOPLASMAL
     Dosage: 25 MG, UNK
     Route: 065

REACTIONS (1)
  - Liver injury [Unknown]
